FAERS Safety Report 6211871-0 (Version None)
Quarter: 2009Q2

REPORT INFORMATION
  Report Type: 
  Country: None (occurrence: None)
  Receive Date: 20090602
  Receipt Date: 20090326
  Transmission Date: 20091009
  Serious: No
  Sender: FDA-Public Use
  Company Number: US-ELI_LILLY_AND_COMPANY-US200903006770

PATIENT
  Sex: Female

DRUGS (9)
  1. CYMBALTA [Suspect]
     Indication: MAJOR DEPRESSION
     Dosage: 90 MG, DAILY (1/D)
     Route: 048
     Dates: start: 20081217
  2. ALPRAZOLAM [Concomitant]
  3. CLONAZEPAM [Concomitant]
  4. METHYLPHENIDATE HCL [Concomitant]
  5. ALLOPURINOL [Concomitant]
  6. SINGULAIR [Concomitant]
  7. NABUMETONE [Concomitant]
  8. TRAMADOL HCL [Concomitant]
  9. TOPROL-XL [Concomitant]

REACTIONS (1)
  - NO ADVERSE EVENT [None]
